FAERS Safety Report 5524737-6 (Version None)
Quarter: 2007Q4

REPORT INFORMATION
  Report Type: 
  Country: None (occurrence: None)
  Receive Date: 20071123
  Receipt Date: 20071119
  Transmission Date: 20080405
  Serious: Yes (Other)
  Sender: FDA-Public Use
  Company Number: PHBS2007ZA18409

PATIENT
  Sex: Female

DRUGS (9)
  1. TEGRETOL [Suspect]
     Indication: NEURALGIA
     Dosage: 200 MG, BID
     Route: 048
     Dates: start: 20001201
  2. TEGRETOL [Suspect]
     Dosage: 400 MG, BID
     Route: 048
  3. CALCIUM [Concomitant]
  4. MILK -THISTLE [Concomitant]
  5. GINKGO BILOBA [Concomitant]
  6. KESSAR [Concomitant]
     Indication: MASTECTOMY
     Dates: start: 20070201
  7. LEXOTAN [Concomitant]
     Indication: ANTIDEPRESSANT THERAPY
  8. STOPAYNE [Concomitant]
  9. PANADO [Concomitant]

REACTIONS (5)
  - CONSTIPATION [None]
  - DRUG INEFFECTIVE [None]
  - DRUG INTERACTION [None]
  - MASTECTOMY [None]
  - PAIN [None]
